FAERS Safety Report 4614032-1 (Version None)
Quarter: 2005Q1

REPORT INFORMATION
  Report Type: 
  Country: None (occurrence: None)
  Receive Date: 20050321
  Receipt Date: 20050318
  Transmission Date: 20050727
  Serious: Yes (Other)
  Sender: FDA-Public Use
  Company Number: PHBS2005SE03928

PATIENT
  Age: 54 Year
  Sex: Female

DRUGS (1)
  1. LEPONEX [Suspect]
     Route: 065

REACTIONS (1)
  - CARDIAC FAILURE [None]
